FAERS Safety Report 4276440-0 (Version None)
Quarter: 2004Q1

REPORT INFORMATION
  Report Type: 
  Country: None (occurrence: None)
  Receive Date: 20040116
  Receipt Date: 20040105
  Transmission Date: 20041129
  Serious: Yes (Hospitalization, Disabling)
  Sender: FDA-Public Use
  Company Number: 2004-DE-00014GD

PATIENT
  Age: 80 Year
  Sex: Female

DRUGS (3)
  1. CYCLOPHOSPHAMIDE [Suspect]
     Indication: T-CELL CHRONIC LYMPHOCYTIC LEUKAEMIA
     Dosage: PO
     Route: 048
  2. CHLORAMBUCIL (CHLORAMBUCIL) [Suspect]
     Indication: T-CELL CHRONIC LYMPHOCYTIC LEUKAEMIA
  3. FLUDARABINE PHOSPHATE [Suspect]
     Indication: T-CELL CHRONIC LYMPHOCYTIC LEUKAEMIA
     Dosage: 25 MG/M2
     Dates: start: 20020501

REACTIONS (11)
  - BLINDNESS [None]
  - CYTOMEGALOVIRUS CHORIORETINITIS [None]
  - DIFFUSE LARGE B-CELL LYMPHOMA [None]
  - DRUG INEFFECTIVE [None]
  - EPSTEIN-BARR VIRUS INFECTION [None]
  - LYMPHOPROLIFERATIVE DISORDER [None]
  - MALIGNANT NEOPLASM PROGRESSION [None]
  - PAROTID GLAND ENLARGEMENT [None]
  - SALIVARY GLAND PAIN [None]
  - SKIN ULCER [None]
  - T-CELL CHRONIC LYMPHOCYTIC LEUKAEMIA [None]
